FAERS Safety Report 18975719 (Version 2)
Quarter: 2021Q2

REPORT INFORMATION
  Report Type: Spontaneous
  Country: JP (occurrence: JP)
  Receive Date: 20210306
  Receipt Date: 20210402
  Transmission Date: 20210717
  Serious: Yes (Other)
  Sender: FDA-Public Use
  Company Number: JP-ASTRAZENECA-2021A093478

PATIENT
  Age: 23721 Day
  Sex: Female
  Weight: 47 kg

DRUGS (6)
  1. MIYA?BM [Concomitant]
     Active Substance: CLOSTRIDIUM BUTYRICUM SPORES STRAIN M-55
     Indication: BOWEL MOVEMENT IRREGULARITY
     Route: 048
     Dates: start: 20200221
  2. TAGRISSO [Suspect]
     Active Substance: OSIMERTINIB
     Indication: NON-SMALL CELL LUNG CANCER
     Route: 048
     Dates: start: 20200717, end: 20200820
  3. GASTROM [Concomitant]
     Active Substance: ECABET SODIUM
     Indication: GASTRITIS
     Route: 048
     Dates: start: 20191213, end: 20201002
  4. TAGRISSO [Suspect]
     Active Substance: OSIMERTINIB
     Indication: NON-SMALL CELL LUNG CANCER
     Route: 048
     Dates: start: 20200821, end: 20200918
  5. NEXIUM [Concomitant]
     Active Substance: ESOMEPRAZOLE MAGNESIUM
     Indication: GASTRITIS
     Route: 048
     Dates: start: 20200424
  6. TAGRISSO [Suspect]
     Active Substance: OSIMERTINIB
     Indication: NON-SMALL CELL LUNG CANCER
     Route: 048
     Dates: start: 20190927, end: 20200716

REACTIONS (5)
  - Bowel movement irregularity [Recovered/Resolved]
  - Aplastic anaemia [Not Recovered/Not Resolved]
  - Stomatitis [Recovered/Resolved]
  - Gastritis [Recovering/Resolving]
  - Rash [Recovered/Resolved]

NARRATIVE: CASE EVENT DATE: 20191001
